FAERS Safety Report 9759231 (Version 1)
Quarter: 2013Q4

REPORT INFORMATION
  Report Type: Spontaneous
  Country: US (occurrence: None)
  Receive Date: 20131216
  Receipt Date: 20131216
  Transmission Date: 20140711
  Serious: Yes (Other)
  Sender: FDA-Public Use
  Company Number: 163-21880-12110263(0)

PATIENT
  Age: 65 Year
  Sex: Male

DRUGS (1)
  1. REVLIMID (LENALIDOMIDE) (CAPSULES) [Suspect]
     Indication: PLASMA CELL MYELOMA
     Dosage: 5MG/10MG, 1 IN 1 D, PO?5MG/10MG, 1 IN 1 D, PO ?10 MG, 1 IN 1 D, PO ?15 MG, 1 IN 1 D, PO

REACTIONS (2)
  - Neutropenia [None]
  - Drug ineffective [None]
